FAERS Safety Report 4674985-2 (Version None)
Quarter: 2005Q2

REPORT INFORMATION
  Report Type: 
  Country: None (occurrence: None)
  Receive Date: 20050526
  Receipt Date: 20050518
  Transmission Date: 20051028
  Serious: Yes (Death, Other)
  Sender: FDA-Public Use
  Company Number: USA-2005-0019422

PATIENT
  Age: 82 Year
  Sex: Male
  Weight: 102 kg

DRUGS (12)
  1. SPECTRACEF [Suspect]
     Indication: PNEUMONIA
     Dosage: 400 MG , BID, ORAL
     Route: 048
     Dates: start: 20050216, end: 20050225
  2. ALBUTEROL [Concomitant]
  3. CATAPRES [Concomitant]
  4. LIPITOR [Concomitant]
  5. SYNTHROID [Concomitant]
  6. DARVOCET-N (DEXTROPROPOXYPHENE NAPSILATE) [Concomitant]
  7. TUSS-IONEX (PHENYLTOLOXAMINE) SUSPENSION [Concomitant]
  8. ADVAIR DISKUS (FLUTICASONE PROPIOANTE) [Concomitant]
  9. NAPROSYN [Concomitant]
  10. PROVENTIL [Concomitant]
  11. OXYBUTYNIN (OXYTROL) (OXYBUTYNIN) PATCH [Concomitant]
  12. NORVASC [Concomitant]

REACTIONS (11)
  - ABDOMINAL PAIN [None]
  - BLOOD POTASSIUM INCREASED [None]
  - BODY TEMPERATURE DECREASED [None]
  - CLOSTRIDIUM COLITIS [None]
  - CYANOSIS [None]
  - GASTROINTESTINAL DISORDER [None]
  - HYPOTENSION [None]
  - RENAL FAILURE [None]
  - RESPIRATORY ARREST [None]
  - RESPIRATORY FAILURE [None]
  - SEPTIC SHOCK [None]
